FAERS Safety Report 7687552-3 (Version None)
Quarter: 2011Q3

REPORT INFORMATION
  Report Type: 
  Country: None (occurrence: None)
  Receive Date: 20110817
  Receipt Date: 20110805
  Transmission Date: 20111222
  Serious: Yes (Hospitalization, Other)
  Sender: FDA-Public Use
  Company Number: HR-PAR PHARMACEUTICAL, INC-2011SCPR003160

PATIENT

DRUGS (4)
  1. HYDROXYUREA [Suspect]
     Indication: THROMBOSIS PROPHYLAXIS
     Dosage: 1000 MG, DAILY
     Route: 065
  2. RAMIPRIL [Suspect]
     Indication: PRODUCT USED FOR UNKNOWN INDICATION
     Dosage: 2.5 MG,
     Route: 065
  3. HYDROXYUREA [Suspect]
     Dosage: 500 MG, DAILY
     Route: 065
  4. ACETYLSALICYLIC ACID SRT [Suspect]
     Indication: POLYCYTHAEMIA VERA
     Dosage: 100 MG,
     Route: 065

REACTIONS (4)
  - HYPERKALAEMIA [None]
  - RENAL FAILURE [None]
  - BLOOD BICARBONATE DECREASED [None]
  - BLOOD PH DECREASED [None]
